FAERS Safety Report 25912966 (Version 1)
Quarter: 2025Q4

REPORT INFORMATION
  Report Type: Spontaneous
  Country: BH (occurrence: BH)
  Receive Date: 20251013
  Receipt Date: 20251013
  Transmission Date: 20260118
  Serious: Yes (Hospitalization)
  Sender: STRIDES
  Company Number: BH-STRIDES ARCOLAB LIMITED-2025SP012751

PATIENT
  Age: 55 Year
  Sex: Male

DRUGS (7)
  1. PREDNISOLONE [Suspect]
     Active Substance: PREDNISOLONE
     Indication: Back pain
     Dosage: 40 MILLIGRAM, EVERY 12 HRS
     Route: 048
  2. PREDNISOLONE [Suspect]
     Active Substance: PREDNISOLONE
     Indication: Intervertebral disc protrusion
  3. DICLOFENAC [Suspect]
     Active Substance: DICLOFENAC
     Indication: Back pain
     Dosage: UNK, HIGH DOSE
     Route: 065
  4. ASPIRIN [Suspect]
     Active Substance: ASPIRIN
     Indication: Cardiovascular event prophylaxis
     Dosage: UNK, CHRONICALLY TAKING LOW-DOSE ASPIRIN FOR OVER 15 YEARS
     Route: 065
  5. ASPIRIN [Suspect]
     Active Substance: ASPIRIN
     Indication: Atherosclerosis prophylaxis
  6. PREGABALIN [Concomitant]
     Active Substance: PREGABALIN
     Indication: Product used for unknown indication
     Dosage: UNK
     Route: 065
  7. PANTOPRAZOLE [Concomitant]
     Active Substance: PANTOPRAZOLE
     Indication: Product used for unknown indication
     Dosage: UNK
     Route: 065

REACTIONS (2)
  - Colitis ischaemic [Recovered/Resolved]
  - Off label use [Unknown]
